FAERS Safety Report 22393465 (Version 1)
Quarter: 2023Q2

REPORT INFORMATION
  Report Type: Spontaneous
  Country: US (occurrence: None)
  Receive Date: 20230531
  Receipt Date: 20230531
  Transmission Date: 20230722
  Serious: Yes (Other)
  Sender: FDA-Public Use
  Company Number: None

PATIENT
  Age: 49 Year
  Sex: Female
  Weight: 54.45 kg

DRUGS (2)
  1. HIZENTRA [Suspect]
     Active Substance: HUMAN IMMUNOGLOBULIN G
     Indication: Sjogren^s syndrome
     Dosage: OTHER FREQUENCY : ONCE WEEKLY;?
     Route: 058
     Dates: start: 20200520
  2. HIZENTRA [Suspect]
     Active Substance: HUMAN IMMUNOGLOBULIN G
     Indication: Sjogren^s syndrome
     Dosage: OTHER FREQUENCY : ONCE WEEKLY;?
     Route: 058
     Dates: start: 20200520

REACTIONS (11)
  - Pruritus [None]
  - Infusion related reaction [None]
  - Infusion site erythema [None]
  - Infusion site warmth [None]
  - Infusion site induration [None]
  - Infusion site rash [None]
  - Dizziness [None]
  - Dyspnoea [None]
  - Gastric disorder [None]
  - Injection site inflammation [None]
  - Product quality issue [None]

NARRATIVE: CASE EVENT DATE: 20230521
